FAERS Safety Report 13495814 (Version 2)
Quarter: 2017Q2

REPORT INFORMATION
  Report Type: Report from Study
  Country: US (occurrence: US)
  Receive Date: 20170428
  Receipt Date: 20170524
  Transmission Date: 20170830
  Serious: Yes (Hospitalization, Other)
  Sender: FDA-Public Use
  Company Number: US-B.I. PHARMACEUTICALS,INC./RIDGEFIELD-2017-BI-022421

PATIENT
  Sex: Male

DRUGS (1)
  1. OFEV [Suspect]
     Active Substance: NINTEDANIB
     Indication: IDIOPATHIC PULMONARY FIBROSIS
     Route: 048
     Dates: start: 20170227

REACTIONS (8)
  - Hypothyroidism [Unknown]
  - Asthenia [Unknown]
  - Dyspnoea [Unknown]
  - Cardiac disorder [Unknown]
  - Chest pain [Unknown]
  - Coronary artery occlusion [Unknown]
  - Atrioventricular block [Unknown]
  - Cough [Unknown]
